FAERS Safety Report 8208152-2 (Version None)
Quarter: 2012Q1

REPORT INFORMATION
  Report Type: 
  Country: None (occurrence: None)
  Receive Date: 20120314
  Receipt Date: 20120307
  Transmission Date: 20120608
  Serious: Yes (Other)
  Sender: FDA-Public Use
  Company Number: PHEH2012US005274

PATIENT
  Sex: Female

DRUGS (1)
  1. EXELON [Suspect]
     Route: 062

REACTIONS (2)
  - AGITATION [None]
  - DELIRIUM [None]
